FAERS Safety Report 5912307-7 (Version None)
Quarter: 2008Q4

REPORT INFORMATION
  Report Type: 
  Country: None (occurrence: None)
  Receive Date: 20081008
  Receipt Date: 20080930
  Transmission Date: 20090506
  Serious: Yes (Death, Hospitalization)
  Sender: FDA-Public Use
  Company Number: FI-ROCHE-589206

PATIENT
  Sex: Male

DRUGS (2)
  1. XELODA [Suspect]
     Dosage: TDD: 2000MG + 1500MG
     Route: 048
     Dates: start: 20080918, end: 20080925
  2. OXALIPLATIN [Concomitant]
     Route: 042
     Dates: start: 20080918, end: 20080918

REACTIONS (4)
  - BRAIN INJURY [None]
  - CARDIAC ARREST [None]
  - LOSS OF CONSCIOUSNESS [None]
  - VENTRICULAR FIBRILLATION [None]
